FAERS Safety Report 10045167 (Version 2)
Quarter: 2014Q2

REPORT INFORMATION
  Report Type: Spontaneous
  Country: JP (occurrence: JP)
  Receive Date: 20140328
  Receipt Date: 20140501
  Transmission Date: 20141212
  Serious: Yes (Hospitalization)
  Sender: FDA-Public Use
  Company Number: JP-ABBVIE-14P-087-1216842-00

PATIENT
  Age: 78 Year
  Sex: Male

DRUGS (3)
  1. LEUPLIN [Suspect]
     Indication: PROSTATE CANCER
     Route: 058
     Dates: start: 2005
  2. EPLERENONE [Concomitant]
     Indication: OEDEMA
     Dates: start: 2011
  3. EPLERENONE [Concomitant]
     Indication: HYPOKALAEMIA

REACTIONS (3)
  - Fibroadenoma of breast [Unknown]
  - Oedema [Unknown]
  - Hypokalaemia [Unknown]
